FAERS Safety Report 7110651-1 (Version None)
Quarter: 2010Q4

REPORT INFORMATION
  Report Type: 
  Country: None (occurrence: None)
  Receive Date: 20101118
  Receipt Date: 20101108
  Transmission Date: 20110411
  Serious: Yes (Hospitalization)
  Sender: FDA-Public Use
  Company Number: JP-JNJFOC-20101104607

PATIENT
  Age: 65 Year
  Sex: Female
  Weight: 42 kg

DRUGS (11)
  1. REMICADE [Suspect]
     Indication: CROHN'S DISEASE
     Route: 042
  2. REMICADE [Suspect]
     Route: 042
  3. REMICADE [Suspect]
     Route: 042
  4. REMICADE [Suspect]
     Route: 042
  5. REMICADE [Suspect]
     Route: 042
  6. ANTIHISTAMINE [Concomitant]
     Indication: PREMEDICATION
  7. ACETAMINOPHEN [Concomitant]
     Indication: PREMEDICATION
  8. STEROIDS NOS [Concomitant]
     Indication: PREMEDICATION
  9. ALLEGRA [Concomitant]
     Indication: RHINITIS ALLERGIC
     Route: 048
  10. GASTER D [Concomitant]
     Indication: PROPHYLAXIS
     Route: 048
  11. CYANOCOBALAMIN [Concomitant]
     Indication: PROPHYLAXIS

REACTIONS (2)
  - ARTHRITIS [None]
  - SUBILEUS [None]
